FAERS Safety Report 4640539-7 (Version None)
Quarter: 2005Q2

REPORT INFORMATION
  Report Type: 
  Country: None (occurrence: None)
  Receive Date: 20050419
  Receipt Date: 20050404
  Transmission Date: 20051028
  Serious: Yes (Death)
  Sender: FDA-Public Use
  Company Number: MK200504-0097-1

PATIENT
  Age: 78 Year
  Sex: Female

DRUGS (1)
  1. BAROSPERSE ENEMA KT 454GM/16OZ BARIUM SULFATE [Suspect]
     Indication: BARIUM ENEMA
     Dosage: ONE TIME, PR
     Route: 054
     Dates: start: 19500905, end: 19500905

REACTIONS (3)
  - ANXIETY [None]
  - PROCEDURAL COMPLICATION [None]
  - X-RAY ABNORMAL [None]
